FAERS Safety Report 4689114-9 (Version None)
Quarter: 2005Q2

REPORT INFORMATION
  Report Type: 
  Country: None (occurrence: None)
  Receive Date: 20050613
  Receipt Date: 20050606
  Transmission Date: 20051028
  Serious: Yes (Hospitalization)
  Sender: FDA-Public Use
  Company Number: PHFR2005GB02057

PATIENT
  Age: 51 Year
  Sex: Female

DRUGS (6)
  1. ZOMETA [Suspect]
     Indication: METASTASES TO BONE
     Dosage: 4MG EVERY 3 WEEKS
     Route: 042
     Dates: start: 20041126
  2. PHARMORUBICIN [Suspect]
     Dosage: 178MG/DAY
     Route: 042
  3. VITAMIN D [Concomitant]
  4. CALCIUM GLUCONATE [Concomitant]
  5. GRANISETRON [Concomitant]
     Dates: start: 20041126
  6. DEXAMETHASONE [Concomitant]
     Dates: start: 20041126, end: 20041126

REACTIONS (6)
  - BREAST INFECTION [None]
  - BREAST PAIN [None]
  - ERYTHEMA [None]
  - IMPLANT SITE INFECTION [None]
  - NEUTROPENIA [None]
  - PYREXIA [None]
